FAERS Safety Report 5571345-7 (Version None)
Quarter: 2007Q4

REPORT INFORMATION
  Report Type: 
  Country: None (occurrence: None)
  Receive Date: 20071221
  Receipt Date: 20070807
  Transmission Date: 20080405
  Serious: No
  Sender: FDA-Public Use
  Company Number: A0668643A

PATIENT
  Age: 53 Year
  Sex: Male

DRUGS (2)
  1. FLONASE [Suspect]
     Dosage: 1SPR PER DAY
     Route: 045
     Dates: start: 20070501, end: 20070729
  2. LIPITOR [Concomitant]

REACTIONS (3)
  - ARTHRITIS [None]
  - ECZEMA [None]
  - SLEEP APNOEA SYNDROME [None]
